FAERS Safety Report 15578992 (Version 1)
Quarter: 2018Q4

REPORT INFORMATION
  Report Type: Spontaneous
  Country: US (occurrence: US)
  Receive Date: 20181029
  Receipt Date: 20181029
  Transmission Date: 20190205
  Serious: Yes (Hospitalization)
  Sender: FDA-Public Use
  Company Number: None

PATIENT
  Age: 4 Year
  Sex: Male
  Weight: 20 kg

DRUGS (22)
  1. LACTOBACILLUS ACIDOPHILUS [Concomitant]
     Active Substance: LACTOBACILLUS ACIDOPHILUS
  2. POLY-VI-SOL [Concomitant]
     Active Substance: VITAMINS
  3. TRIAMCINOLONE [Concomitant]
     Active Substance: TRIAMCINOLONE
  4. LAMOTRIGINE. [Concomitant]
     Active Substance: LAMOTRIGINE
  5. POLYETHYLENE GLYCOL [Concomitant]
     Active Substance: POLYETHYLENE GLYCOLS
  6. RISPERIDONE. [Concomitant]
     Active Substance: RISPERIDONE
  7. CETIRIZINE [Concomitant]
     Active Substance: CETIRIZINE HYDROCHLORIDE
  8. FLUTICASONE. [Concomitant]
     Active Substance: FLUTICASONE
  9. BRIVARACETAM [Concomitant]
     Active Substance: BRIVARACETAM
  10. SENNA SYRUP [Concomitant]
     Active Substance: SENNOSIDES
  11. CLONIDINE. [Concomitant]
     Active Substance: CLONIDINE
  12. CANNABIDIOL ORAL SOLUTION 300 MG/ML [Suspect]
     Active Substance: CANNABIDIOL
     Indication: EPILEPSY
     Dosage: 1.3 ML BID G-J TUBE
     Dates: start: 20160429
  13. LEVALBUTEROL. [Concomitant]
     Active Substance: LEVALBUTEROL
  14. NEXIUM [Concomitant]
     Active Substance: ESOMEPRAZOLE MAGNESIUM
  15. ERYTHROMYCIN ETHYLEUCCINATE [Concomitant]
  16. DIAZEPAM. [Concomitant]
     Active Substance: DIAZEPAM
  17. MONTELUKAST CHEWABLE [Concomitant]
  18. NYSTATIN. [Concomitant]
     Active Substance: NYSTATIN
  19. CLOBAZAM. [Concomitant]
     Active Substance: CLOBAZAM
  20. FLUTICASONE-SALMETEROL [Concomitant]
  21. ESLICABAZEPINE [Concomitant]
  22. GLYCOPYRROLATE. [Concomitant]
     Active Substance: GLYCOPYRROLATE

REACTIONS (1)
  - Device malfunction [None]
